FAERS Safety Report 24193358 (Version 2)
Quarter: 2024Q4

REPORT INFORMATION
  Report Type: Spontaneous
  Country: JO (occurrence: JO)
  Receive Date: 20240809
  Receipt Date: 20241126
  Transmission Date: 20250115
  Serious: Yes (Disabling, Other)
  Sender: NOVARTIS
  Company Number: JO-002147023-NVSC2024JO161671

PATIENT
  Age: 47 Year
  Sex: Female

DRUGS (4)
  1. KISQALI [Suspect]
     Active Substance: RIBOCICLIB
     Indication: Breast cancer
     Dosage: 600 MG
     Route: 048
     Dates: start: 20240212
  2. KISQALI [Suspect]
     Active Substance: RIBOCICLIB
     Dosage: 600 MG (3 WEEKS ON AND 1 WEEK OFF)
     Route: 048
     Dates: start: 202408, end: 202411
  3. LETROZOLE [Suspect]
     Active Substance: LETROZOLE
     Indication: Breast cancer
     Dosage: 2.5 MG, QD
     Route: 048
     Dates: start: 202408, end: 202411
  4. FULVESTRANT [Concomitant]
     Active Substance: FULVESTRANT
     Indication: Product used for unknown indication
     Dosage: 500 MG
     Route: 030

REACTIONS (7)
  - Optic perineuritis [Not Recovered/Not Resolved]
  - Metastases to meninges [Unknown]
  - Vision blurred [Unknown]
  - Diplopia [Unknown]
  - Visual field defect [Unknown]
  - Visual acuity reduced [Unknown]
  - Intraocular pressure increased [Unknown]

NARRATIVE: CASE EVENT DATE: 20240601
